FAERS Safety Report 17373798 (Version 7)
Quarter: 2021Q1

REPORT INFORMATION
  Report Type: Report from Study
  Country: US (occurrence: US)
  Receive Date: 20200205
  Receipt Date: 20210220
  Transmission Date: 20210419
  Serious: Yes (Hospitalization)
  Sender: FDA-Public Use
  Company Number: NVSC2019US046619

PATIENT
  Age: 57 Year
  Sex: Female
  Weight: 43.54 kg

DRUGS (1)
  1. ENTRESTO [Suspect]
     Active Substance: SACUBITRIL\VALSARTAN
     Indication: PRODUCT USED FOR UNKNOWN INDICATION
     Dosage: 50 MG, BID (24/26 MG)
     Route: 048
     Dates: start: 201911

REACTIONS (10)
  - Decreased appetite [Unknown]
  - Depression [Unknown]
  - Weight decreased [Unknown]
  - Somnolence [Unknown]
  - Feeling abnormal [Unknown]
  - Nausea [Unknown]
  - Dehydration [Unknown]
  - Product dose omission issue [Recovered/Resolved]
  - Vomiting [Unknown]
  - Blood potassium increased [Not Recovered/Not Resolved]

NARRATIVE: CASE EVENT DATE: 20200304
